FAERS Safety Report 9863221 (Version 2)
Quarter: 2014Q1

REPORT INFORMATION
  Report Type: Report from Study
  Country: US (occurrence: US)
  Receive Date: 20140203
  Receipt Date: 20140203
  Transmission Date: 20141002
  Serious: Yes (Life-Threatening, Hospitalization, Other)
  Sender: FDA-Public Use
  Company Number: US-ACTELION-A-NJ2012-76454

PATIENT
  Age: 73 Year
  Sex: Female

DRUGS (2)
  1. VELETRI [Suspect]
     Indication: PULMONARY ARTERIAL HYPERTENSION
     Dosage: 41 NG/KG, PER MIN
     Route: 041
     Dates: start: 20120926
  2. VELETRI [Suspect]
     Dosage: 55 NG/KG, PER MIN
     Route: 042
     Dates: start: 201301

REACTIONS (7)
  - Pulmonary arterial hypertension [Recovering/Resolving]
  - Fluid overload [Recovering/Resolving]
  - Right ventricular failure [Unknown]
  - Condition aggravated [Recovering/Resolving]
  - Dyspnoea [Recovering/Resolving]
  - Local swelling [Not Recovered/Not Resolved]
  - Cardiac failure congestive [Recovering/Resolving]
